FAERS Safety Report 18292900 (Version 1)
Quarter: 2020Q3

REPORT INFORMATION
  Report Type: Spontaneous
  Country: US (occurrence: US)
  Receive Date: 20200921
  Receipt Date: 20200921
  Transmission Date: 20201103
  Serious: Yes (Death, Hospitalization)
  Sender: FDA-Public Use
  Company Number: None

PATIENT
  Age: 29 Year
  Sex: Male

DRUGS (1)
  1. AXICABTAGENE CILOLEUCEL [Suspect]
     Active Substance: AXICABTAGENE CILOLEUCEL
     Indication: DIFFUSE LARGE B-CELL LYMPHOMA
     Dosage: ?          OTHER FREQUENCY:ONCE;?
     Route: 042
     Dates: start: 20200629, end: 20200629

REACTIONS (8)
  - Neurotoxicity [None]
  - Pancytopenia [None]
  - Epstein-Barr viraemia [None]
  - Bacteraemia [None]
  - Somnolence [None]
  - Blood lactate dehydrogenase increased [None]
  - Hypercalcaemia [None]
  - Cytomegalovirus viraemia [None]

NARRATIVE: CASE EVENT DATE: 20200723
